FAERS Safety Report 11068565 (Version 1)
Quarter: 2015Q2

REPORT INFORMATION
  Report Type: Spontaneous
  Country: US (occurrence: None)
  Receive Date: 20150424
  Receipt Date: 20150424
  Transmission Date: 20150821
  Serious: No
  Sender: FDA-Public Use
  Company Number: None

PATIENT
  Age: 73 Year
  Sex: Male
  Weight: 90.72 kg

DRUGS (1)
  1. CELECOXIB 100 MG CAPSULES (GENERIC FOR CELEBREX 100 MG CAPSULES) [Suspect]
     Active Substance: CELECOXIB
     Indication: ARTHRALGIA
     Route: 048
     Dates: start: 20141221, end: 20141229

REACTIONS (6)
  - Product substitution issue [None]
  - Toothache [None]
  - Memory impairment [None]
  - Arthralgia [None]
  - Pain in jaw [None]
  - Drug ineffective [None]
